FAERS Safety Report 7249013-5 (Version None)
Quarter: 2011Q1

REPORT INFORMATION
  Report Type: 
  Country: None (occurrence: None)
  Receive Date: 20110128
  Receipt Date: 20101020
  Transmission Date: 20110831
  Serious: Yes (Hospitalization, Other)
  Sender: FDA-Public Use
  Company Number: US-BAYER-201015458NA

PATIENT
  Sex: Female
  Weight: 81.633 kg

DRUGS (5)
  1. FLAGYL [Concomitant]
     Dosage: UNK
     Dates: start: 20080301
  2. UNCODEABLE ^UNCLASSIFIABLE^ [Concomitant]
     Dosage: UNK
     Dates: start: 20080301
  3. YASMIN [Suspect]
     Indication: CONTRACEPTION
     Dosage: UNK UNK, QD
     Route: 048
     Dates: start: 20030401, end: 20070101
  4. LEVAQUIN [Concomitant]
  5. UNCODEABLE ^UNCLASSIFIABLE^ [Concomitant]
     Dosage: UNK
     Dates: start: 20080503

REACTIONS (5)
  - CHOLECYSTITIS CHRONIC [None]
  - ABDOMINAL PAIN [None]
  - FLANK PAIN [None]
  - MENORRHAGIA [None]
  - BACK PAIN [None]
